FAERS Safety Report 24800229 (Version 1)
Quarter: 2025Q1

REPORT INFORMATION
  Report Type: Spontaneous
  Country: US (occurrence: None)
  Receive Date: 20250101
  Receipt Date: 20250101
  Transmission Date: 20250409
  Serious: Yes (Other)
  Sender: FDA-CTU
  Company Number: None

PATIENT
  Age: 12 Year
  Sex: Female
  Weight: 36 kg

DRUGS (8)
  1. COUGH AND COLD HBP [Suspect]
     Active Substance: CHLORPHENIRAMINE MALEATE\DEXTROMETHORPHAN HYDROBROMIDE
     Indication: Cough
     Dosage: 16 TABLETS EVERY 6 HOURS   CRUSHED AND ADMINISTERED THROUGH G-TUBE?
     Route: 050
     Dates: start: 20241229, end: 20241231
  2. Diazipam [Concomitant]
  3. VALPROIC ACID [Concomitant]
     Active Substance: VALPROIC ACID
  4. BACLOFEN [Concomitant]
     Active Substance: BACLOFEN
  5. DEVICE [Concomitant]
     Active Substance: DEVICE
  6. UNSPECIFIED INGREDIENT [Concomitant]
     Active Substance: UNSPECIFIED INGREDIENT
  7. Lansoprosol [Concomitant]
  8. TYLENOL [Concomitant]
     Active Substance: ACETAMINOPHEN

REACTIONS (2)
  - Product advertising issue [None]
  - Haematemesis [None]

NARRATIVE: CASE EVENT DATE: 20250101
